FAERS Safety Report 5819508-7 (Version None)
Quarter: 2008Q3

REPORT INFORMATION
  Report Type: 
  Country: None (occurrence: None)
  Receive Date: 20080723
  Receipt Date: 20080714
  Transmission Date: 20090109
  Serious: Yes (Hospitalization)
  Sender: FDA-Public Use
  Company Number: FR-WYE-H05134208

PATIENT
  Age: 75 Year
  Sex: Female

DRUGS (6)
  1. OROKEN [Suspect]
     Dosage: UNKNOWN
     Route: 048
     Dates: start: 20080507, end: 20080101
  2. DOMPERIDONE [Suspect]
     Dosage: 3 DF (UNKNOWN FREQUENCY)
     Route: 048
     Dates: end: 20080513
  3. COZAAR [Concomitant]
     Dosage: UNKNOWN
     Route: 048
  4. PROPRANOLOL [Concomitant]
     Dosage: UNKNOWN
     Route: 048
  5. TOPALGIC [Suspect]
     Dosage: 200 MG DAILY
     Route: 048
     Dates: end: 20080513
  6. OMEPRAZOLE [Concomitant]
     Dosage: UNKNOWN

REACTIONS (3)
  - NAUSEA [None]
  - NONSPECIFIC REACTION [None]
  - VOMITING [None]
